FAERS Safety Report 4843987-5 (Version None)
Quarter: 2005Q4

REPORT INFORMATION
  Report Type: 
  Country: None (occurrence: None)
  Receive Date: 20051202
  Receipt Date: 20050425
  Transmission Date: 20060501
  Serious: No
  Sender: FDA-Public Use
  Company Number: US-GLAXOSMITHKLINE-A0555566A

PATIENT
  Age: 52 Year
  Sex: Male

DRUGS (2)
  1. AUGMENTIN [Suspect]
     Dosage: 1000MG TWICE PER DAY
     Route: 048
     Dates: start: 20050423
  2. NO CONCURRENT MEDICATION [Concomitant]

REACTIONS (5)
  - DIARRHOEA [None]
  - DRY MOUTH [None]
  - FLATULENCE [None]
  - NAUSEA [None]
  - POLLAKIURIA [None]
